FAERS Safety Report 6504613-2 (Version None)
Quarter: 2009Q4

REPORT INFORMATION
  Report Type: 
  Country: None (occurrence: None)
  Receive Date: 20091215
  Receipt Date: 20091204
  Transmission Date: 20100525
  Serious: Yes (Hospitalization)
  Sender: FDA-Public Use
  Company Number: 2009AC000477

PATIENT
  Age: 58 Year
  Sex: Male

DRUGS (12)
  1. DIGOXIN [Suspect]
     Dosage: 0.125 MG; QD; PO
     Route: 048
     Dates: start: 20071101
  2. CARVEDILOL [Concomitant]
  3. BACTRIM [Concomitant]
  4. COUMADIN [Concomitant]
  5. ALDACTONE [Concomitant]
  6. AMIODARONE HCL [Concomitant]
  7. CARDIZEM [Concomitant]
  8. PRAVASTATIN [Concomitant]
  9. COREG [Concomitant]
  10. COZCAR [Concomitant]
  11. LIBRIUM [Concomitant]
  12. ATIVAN [Concomitant]

REACTIONS (9)
  - AORTIC VALVE INCOMPETENCE [None]
  - AORTIC VALVE SCLEROSIS [None]
  - ATRIAL FIBRILLATION [None]
  - CHEST PAIN [None]
  - DYSPNOEA [None]
  - EJECTION FRACTION DECREASED [None]
  - INTRACARDIAC THROMBUS [None]
  - PALPITATIONS [None]
  - RENAL FAILURE ACUTE [None]
